FAERS Safety Report 6283023-X (Version None)
Quarter: 2009Q3

REPORT INFORMATION
  Report Type: 
  Country: None (occurrence: None)
  Receive Date: 20090724
  Receipt Date: 20090720
  Transmission Date: 20100115
  Serious: Yes (Other)
  Sender: FDA-Public Use
  Company Number: GB-BRISTOL-MYERS SQUIBB COMPANY-14709240

PATIENT
  Sex: Male

DRUGS (1)
  1. ABATACEPT [Suspect]
     Dosage: IIND INF ON 20 MAY 2009
     Route: 042
     Dates: start: 20090506

REACTIONS (1)
  - RENAL IMPAIRMENT [None]
